FAERS Safety Report 6126309-1 (Version None)
Quarter: 2009Q1

REPORT INFORMATION
  Report Type: 
  Country: None (occurrence: None)
  Receive Date: 20090320
  Receipt Date: 20090310
  Transmission Date: 20090719
  Serious: Yes (Other)
  Sender: FDA-Public Use
  Company Number: IN-MERCK-0903USA02575

PATIENT
  Age: 58 Year
  Sex: Female
  Weight: 59 kg

DRUGS (8)
  1. JANUVIA [Suspect]
     Indication: DIABETES MELLITUS
     Route: 048
     Dates: start: 20081001, end: 20081101
  2. METFORMIN [Concomitant]
     Route: 065
  3. PREMARIN [Concomitant]
     Route: 065
  4. VITAMIN B COMPLEX [Concomitant]
     Route: 065
  5. GLIMEPIRIDE [Concomitant]
     Route: 065
  6. ATORVASTATIN [Concomitant]
     Route: 065
  7. LANTUS [Concomitant]
     Route: 065
  8. VITAMIN E [Concomitant]
     Route: 065

REACTIONS (2)
  - PRURITUS [None]
  - RASH [None]
